FAERS Safety Report 19066277 (Version 1)
Quarter: 2021Q1

REPORT INFORMATION
  Report Type: Spontaneous
  Country: NL (occurrence: NL)
  Receive Date: 20210328
  Receipt Date: 20210328
  Transmission Date: 20210420
  Serious: Yes (Other)
  Sender: FDA-Public Use
  Company Number: NL-AMGEN-NLDSP2021031088

PATIENT
  Age: 26 Year
  Sex: Male
  Weight: 91 kg

DRUGS (2)
  1. ADALIMUMAB [Suspect]
     Active Substance: ADALIMUMAB
     Indication: COLITIS ULCERATIVE
     Dosage: 80 MILLIGRAM
     Route: 065
     Dates: start: 20210126
  2. PREDNISON [Concomitant]
     Active Substance: PREDNISONE
     Dosage: 30 MILLIGRAM

REACTIONS (1)
  - Acute febrile neutrophilic dermatosis [Recovered/Resolved]

NARRATIVE: CASE EVENT DATE: 20210201
